FAERS Safety Report 19022529 (Version 1)
Quarter: 2021Q1

REPORT INFORMATION
  Report Type: Spontaneous
  Country: CN (occurrence: CN)
  Receive Date: 20210317
  Receipt Date: 20210317
  Transmission Date: 20210420
  Serious: Yes (Hospitalization)
  Sender: FDA-Public Use
  Company Number: CN-PFIZER INC-2021269565

PATIENT
  Age: 18 Year
  Sex: Male
  Weight: 49 kg

DRUGS (4)
  1. SODIUM CHLORIDE. [Concomitant]
     Active Substance: SODIUM CHLORIDE
     Indication: VEHICLE SOLUTION USE
     Dosage: 500 ML, 2X/DAY
     Route: 041
     Dates: start: 20200529, end: 20200531
  2. METHOTREXATE. [Suspect]
     Active Substance: METHOTREXATE
     Indication: ACUTE LYMPHOCYTIC LEUKAEMIA
     Dosage: 1500 MG, 1X/DAY
     Route: 041
     Dates: start: 20200530, end: 20200531
  3. CYTOSAR [Suspect]
     Active Substance: CYTARABINE
     Indication: ACUTE LYMPHOCYTIC LEUKAEMIA
     Dosage: 4500 MG, 2X/DAY
     Route: 041
     Dates: start: 20200529, end: 20200529
  4. CALCIUM FOLINATE [Concomitant]
     Active Substance: LEUCOVORIN CALCIUM
     Indication: THERAPEUTIC PROCEDURE
     Dosage: 50 MG, 4X/DAY
     Route: 030
     Dates: start: 20200530, end: 20200530

REACTIONS (6)
  - Pyrexia [Recovering/Resolving]
  - Petechiae [Recovering/Resolving]
  - Pneumonia [Recovering/Resolving]
  - Myelosuppression [Recovering/Resolving]
  - Ecchymosis [Recovering/Resolving]
  - Haemorrhage subcutaneous [Recovering/Resolving]

NARRATIVE: CASE EVENT DATE: 20200601
